FAERS Safety Report 5758741-X (Version None)
Quarter: 2008Q2

REPORT INFORMATION
  Report Type: 
  Country: None (occurrence: None)
  Receive Date: 20080604
  Receipt Date: 20080521
  Transmission Date: 20081010
  Serious: Yes (Other)
  Sender: FDA-Public Use
  Company Number: US-BAYER-200811974BCC

PATIENT
  Age: 53 Year
  Sex: Female
  Weight: 104 kg

DRUGS (4)
  1. ASPIRIN [Suspect]
     Indication: HEADACHE
     Route: 048
  2. BAYER ARTHRITIS [Suspect]
     Indication: PAIN
     Route: 048
     Dates: start: 19900101
  3. BAYER EXTRA STRENGTH BACK + BODY PAIN [Suspect]
     Indication: PAIN
     Route: 048
     Dates: start: 19900101
  4. WATER PILL [Concomitant]

REACTIONS (8)
  - ABDOMINAL PAIN UPPER [None]
  - ARTHRALGIA [None]
  - DIABETES MELLITUS [None]
  - DYSURIA [None]
  - NAUSEA [None]
  - OSTEOARTHRITIS [None]
  - PARAESTHESIA [None]
  - URINARY INCONTINENCE [None]
